FAERS Safety Report 20764470 (Version 2)
Quarter: 2022Q2

REPORT INFORMATION
  Report Type: Report from Study
  Country: CO (occurrence: CO)
  Receive Date: 20220428
  Receipt Date: 20220505
  Transmission Date: 20220720
  Serious: Yes (Death, Hospitalization)
  Sender: FDA-Public Use
  Company Number: CO-BAYER-2022A059221

PATIENT
  Age: 53 Year
  Sex: Female

DRUGS (1)
  1. VENTAVIS [Suspect]
     Active Substance: ILOPROST
     Indication: Pulmonary arterial hypertension
     Dosage: 1 DF, 6ID
     Route: 055
     Dates: start: 20210119

REACTIONS (3)
  - Oedema peripheral [Fatal]
  - Cardio-respiratory arrest [Fatal]
  - Gait disturbance [Unknown]

NARRATIVE: CASE EVENT DATE: 20220420
